FAERS Safety Report 22524897 (Version 4)
Quarter: 2023Q2

REPORT INFORMATION
  Report Type: Spontaneous
  Country: BG (occurrence: BG)
  Receive Date: 20230606
  Receipt Date: 20230616
  Transmission Date: 20230721
  Serious: Yes (Other)
  Sender: FDA-Public Use
  Company Number: BG-002147023-NVSC2023BG117059

PATIENT
  Age: 77 Year
  Sex: Female

DRUGS (4)
  1. OXALIPLATIN [Suspect]
     Active Substance: OXALIPLATIN
     Indication: Adenocarcinoma gastric
     Dosage: 100 MG/M2 (ON DAY 1 EVERY 21 DAYS)
     Route: 065
     Dates: start: 20220519, end: 20220730
  2. OXALIPLATIN [Suspect]
     Active Substance: OXALIPLATIN
     Indication: Gastric cancer
     Dosage: 120 MG ON DAY 1 IN CYCLE 3 (30 PERCENT DOSE REDUCTION, DUE TO POLYNEUROPATHY)
     Route: 065
     Dates: start: 202207, end: 202207
  3. CAPECITABINE [Suspect]
     Active Substance: CAPECITABINE
     Indication: Adenocarcinoma gastric
     Dosage: 2000 MG/M2 (ON DAY 1-14), FOLLOWED BY A 7-DAY REST PERIOD
     Route: 065
     Dates: start: 20220519, end: 20220730
  4. CAPECITABINE [Suspect]
     Active Substance: CAPECITABINE
     Indication: Gastric cancer
     Dosage: 2000 MG, QD ON DAY 1-14 OF CYCLE 4
     Route: 065
     Dates: start: 202207, end: 202207

REACTIONS (4)
  - Polyneuropathy [Unknown]
  - Haematotoxicity [Unknown]
  - Neoplasm progression [Unknown]
  - Product use in unapproved indication [Unknown]

NARRATIVE: CASE EVENT DATE: 20220701
